FAERS Safety Report 20941481 (Version 2)
Quarter: 2022Q3

REPORT INFORMATION
  Report Type: Spontaneous
  Country: FR (occurrence: FR)
  Receive Date: 20220610
  Receipt Date: 20220710
  Transmission Date: 20221027
  Serious: No
  Sender: FDA-Public Use
  Company Number: FR-JNJFOC-20220606517

PATIENT

DRUGS (1)
  1. PREZISTA [Suspect]
     Active Substance: DARUNAVIR ETHANOLATE
     Indication: Product used for unknown indication
     Route: 065

REACTIONS (1)
  - Device issue [Unknown]
